FAERS Safety Report 4677521-X (Version None)
Quarter: 2005Q2

REPORT INFORMATION
  Report Type: 
  Country: None (occurrence: None)
  Receive Date: 20050525
  Receipt Date: 20050525
  Transmission Date: 20051028
  Serious: Yes (Hospitalization)
  Sender: FDA-Public Use
  Company Number: None

PATIENT
  Age: 42 Year
  Sex: Male
  Weight: 83.5 kg

DRUGS (11)
  1. NIACIN [Suspect]
  2. ABACAVIR [Concomitant]
  3. ACYCLOVIR [Concomitant]
  4. ACETAMINOPHEN [Concomitant]
  5. EFAVIRENZ [Concomitant]
  6. POTASSIUM PHOSPHATES [Concomitant]
  7. LOPERAMIDE [Concomitant]
  8. MAGNESIUM GLUCONATE [Concomitant]
  9. OMEPRAZOLE [Concomitant]
  10. RITONAVIR [Concomitant]
  11. SAQUINAVIR [Concomitant]

REACTIONS (3)
  - HEPATIC ENZYME INCREASED [None]
  - NAUSEA [None]
  - VOMITING [None]
